FAERS Safety Report 8817230 (Version 1)
Quarter: 2012Q4

REPORT INFORMATION
  Report Type: 
  Country: FR (occurrence: FR)
  Receive Date: 20121001
  Receipt Date: 20121001
  Transmission Date: 20130627
  Serious: Yes (Hospitalization, Other)
  Sender: FDA-Public Use
  Company Number: FR-ASTRAZENECA-2012SE74129

PATIENT
  Age: 60 Year
  Sex: Female

DRUGS (15)
  1. INEXIUM [Suspect]
     Route: 048
     Dates: start: 20120524, end: 20120625
  2. BROMAZEPAM [Suspect]
     Dosage: DAILY
     Route: 048
     Dates: end: 20120625
  3. CONEBILOX [Suspect]
     Dosage: 5/12.5 MG, DAILY
     Route: 048
     Dates: start: 20120622, end: 20120625
  4. CYMBALTA [Suspect]
     Route: 048
     Dates: start: 20120521, end: 20120625
  5. LORAZEPAM [Suspect]
     Route: 048
     Dates: start: 20120622, end: 20120625
  6. TANGANIL [Suspect]
     Dosage: DAILY
     Route: 048
     Dates: start: 20120622, end: 20120625
  7. ARCOXIA [Suspect]
     Route: 065
     Dates: end: 20120625
  8. LAMALINE [Suspect]
     Dosage: DAILY
     Route: 048
     Dates: end: 20120625
  9. THERALENE [Suspect]
     Dosage: DAILY
     Route: 048
     Dates: end: 20120625
  10. TERCIAN [Concomitant]
  11. LEVOTHYROX [Concomitant]
     Indication: HYPOTHYROIDISM
  12. ZANIDIP [Concomitant]
  13. HYPERIUM [Concomitant]
  14. KARDEGIC [Concomitant]
  15. TEMERIT [Concomitant]

REACTIONS (3)
  - Hypertensive crisis [Unknown]
  - Hyponatraemia [Recovered/Resolved]
  - Intentional drug misuse [Unknown]
